FAERS Safety Report 11131597 (Version 1)
Quarter: 2015Q2

REPORT INFORMATION
  Report Type: Spontaneous
  Country: US (occurrence: None)
  Receive Date: 20150521
  Receipt Date: 20150521
  Transmission Date: 20150821
  Serious: Yes (Life-Threatening, Hospitalization)
  Sender: FDA-Public Use
  Company Number: None

PATIENT
  Age: 56 Year
  Sex: Male
  Weight: 136.08 kg

DRUGS (15)
  1. VENLAFAXINE ER [Concomitant]
     Active Substance: VENLAFAXINE HYDROCHLORIDE
  2. VITAMIN D2 [Concomitant]
     Active Substance: ERGOCALCIFEROL
  3. TIZANIDIN [Concomitant]
  4. NEXIUM [Concomitant]
     Active Substance: ESOMEPRAZOLE MAGNESIUM
  5. WARFARIN [Concomitant]
     Active Substance: WARFARIN
  6. HYDROCODON ACETOMENOPHEN [Concomitant]
  7. LOSARTAN HRTZ [Concomitant]
  8. FUTICASONE SPRAY [Concomitant]
  9. SYNTHROID [Concomitant]
     Active Substance: LEVOTHYROXINE SODIUM
  10. AMLODIPINE [Concomitant]
     Active Substance: AMLODIPINE BESYLATE
  11. QSYMIA [Concomitant]
     Active Substance: PHENTERMINE HYDROCHLORIDE\TOPIRAMATE
  12. CLOMID [Suspect]
     Active Substance: CLOMIPHENE CITRATE
     Indication: BLOOD TESTOSTERONE DECREASED
     Route: 048
  13. TAMULOSIN [Concomitant]
     Active Substance: TAMSULOSIN
  14. GLUCOSAMINE CHONDROITIN [Concomitant]
     Active Substance: CHONDROITIN SULFATE (BOVINE)\GLUCOSAMINE HYDROCHLORIDE
  15. CENTRUM SILVER [Concomitant]
     Active Substance: VITAMINS

REACTIONS (6)
  - Heart rate increased [None]
  - Phlebitis [None]
  - Cellulitis [None]
  - Pulmonary embolism [None]
  - Hypertension [None]
  - Pulmonary thrombosis [None]

NARRATIVE: CASE EVENT DATE: 20150501
